FAERS Safety Report 8392363-X (Version None)
Quarter: 2012Q2

REPORT INFORMATION
  Report Type: 
  Country: None (occurrence: None)
  Receive Date: 20120529
  Receipt Date: 20120521
  Transmission Date: 20120825
  Serious: Yes (Other)
  Sender: FDA-Public Use
  Company Number: US-ACTELION-A-NJ2011-57081

PATIENT

DRUGS (6)
  1. REVATIO [Concomitant]
  2. TRACLEER [Suspect]
     Dosage: UNK
     Route: 048
  3. BETA BLOCKING AGENTS [Concomitant]
  4. ASPIRIN [Concomitant]
  5. TRACLEER [Suspect]
     Indication: PULMONARY ARTERIAL HYPERTENSION
     Dosage: UNK
     Route: 048
     Dates: start: 20110520
  6. COUMADIN [Concomitant]

REACTIONS (9)
  - FATIGUE [None]
  - FLUID OVERLOAD [None]
  - DYSPNOEA [None]
  - AUTOIMMUNE APLASTIC ANAEMIA [None]
  - NO THERAPEUTIC RESPONSE [None]
  - HAEMORRHAGE [None]
  - PERICARDIAL EFFUSION [None]
  - MALAISE [None]
  - MYELOPROLIFERATIVE DISORDER [None]
